FAERS Safety Report 5159714-0 (Version None)
Quarter: 2006Q4

REPORT INFORMATION
  Report Type: 
  Country: None (occurrence: None)
  Receive Date: 20061129
  Receipt Date: 20040726
  Transmission Date: 20070319
  Serious: No
  Sender: FDA-Public Use
  Company Number: US-GLAXOSMITHKLINE-A0519708A

PATIENT
  Age: 55 Year
  Sex: Female
  Weight: 64.5 kg

DRUGS (3)
  1. WELLBUTRIN SR [Suspect]
     Indication: DEPRESSION
     Dosage: 150MG PER DAY
     Route: 048
     Dates: start: 20010101
  2. WELLBUTRIN XL [Suspect]
     Indication: DEPRESSION
     Dosage: 1150MG PER DAY
     Route: 048
     Dates: start: 20040101
  3. NO CONCURRENT MEDICATION [Concomitant]

REACTIONS (3)
  - DRUG INEFFECTIVE [None]
  - DRUG INTOLERANCE [None]
  - TINNITUS [None]
